FAERS Safety Report 7794990 (Version 4)
Quarter: 2020Q3

REPORT INFORMATION
  Report Type: Report from Study
  Country: PL (occurrence: PL)
  Receive Date: 20110201
  Receipt Date: 20110309
  Transmission Date: 20201105
  Serious: Yes (Hospitalization)
  Sender: FDA-Public Use
  Company Number: PL-JNJFOC-20110105839

PATIENT
  Age: 17 Year
  Sex: Male
  Weight: 70 kg

DRUGS (11)
  1. PALIPERIDONE. [Suspect]
     Active Substance: PALIPERIDONE
     Indication: SCHIZOPHRENIA
     Route: 048
  2. LORAZEPAM. [Concomitant]
     Active Substance: LORAZEPAM
  3. PALIPERIDONE. [Suspect]
     Active Substance: PALIPERIDONE
     Route: 048
  4. LORAZEPAM. [Concomitant]
     Active Substance: LORAZEPAM
  5. LORAZEPAM. [Concomitant]
     Active Substance: LORAZEPAM
  6. PALIPERIDONE. [Suspect]
     Active Substance: PALIPERIDONE
     Route: 048
  7. PALIPERIDONE. [Suspect]
     Active Substance: PALIPERIDONE
     Route: 048
  8. LORAZEPAM. [Concomitant]
     Active Substance: LORAZEPAM
  9. LORAZEPAM. [Concomitant]
     Active Substance: LORAZEPAM
  10. LORAZEPAM. [Concomitant]
     Active Substance: LORAZEPAM
  11. LORAZEPAM. [Concomitant]
     Active Substance: LORAZEPAM
     Indication: ANXIETY

REACTIONS (1)
  - Suicidal ideation [Recovered/Resolved]

NARRATIVE: CASE EVENT DATE: 20110121
